FAERS Safety Report 8206986-1 (Version None)
Quarter: 2012Q1

REPORT INFORMATION
  Report Type: 
  Country: None (occurrence: None)
  Receive Date: 20120312
  Receipt Date: 20120227
  Transmission Date: 20120608
  Serious: Yes (Hospitalization, Other)
  Sender: FDA-Public Use
  Company Number: NSR_00503_2012

PATIENT
  Age: 45 Year
  Sex: Female

DRUGS (2)
  1. ATENOLOL [Concomitant]
  2. ALLOPURINOL [Suspect]
     Indication: PRODUCT USED FOR UNKNOWN INDICATION
     Dosage: (DF [100 MG.DAY])
     Dates: start: 20100801, end: 20100101

REACTIONS (6)
  - HUMAN HERPES VIRUS 6 SEROLOGY POSITIVE [None]
  - DIARRHOEA [None]
  - RENAL FAILURE ACUTE [None]
  - DRUG RASH WITH EOSINOPHILIA AND SYSTEMIC SYMPTOMS [None]
  - HYPOTENSION [None]
  - HEPATIC NECROSIS [None]
